FAERS Safety Report 5283040-2 (Version None)
Quarter: 2007Q1

REPORT INFORMATION
  Report Type: 
  Country: None (occurrence: None)
  Receive Date: 20070327
  Receipt Date: 20070319
  Transmission Date: 20070707
  Serious: Yes (Hospitalization)
  Sender: FDA-Public Use
  Company Number: LTI2007A00049

PATIENT
  Age: 70 Year
  Sex: Female

DRUGS (8)
  1. ACTOS [Suspect]
     Indication: DIABETES MELLITUS NON-INSULIN-DEPENDENT
     Dosage: 30 MG (30 MG, 1 IN 1 D) ORAL
     Route: 048
     Dates: start: 20060701, end: 20060731
  2. ALDACTONE [Concomitant]
  3. NISIS (VALSARTAN) [Concomitant]
  4. GLUCOPHAGE [Concomitant]
  5. AMARYL [Concomitant]
  6. SIMVASTATIN [Concomitant]
  7. RANITIDINE HYDROCHLORIDE [Concomitant]
  8. TRIVASTAL (PIRIBEDIL) [Concomitant]

REACTIONS (10)
  - ASTHENIA [None]
  - BLOOD CREATINE PHOSPHOKINASE INCREASED [None]
  - DYSPNOEA [None]
  - FAT REDISTRIBUTION [None]
  - MYALGIA [None]
  - NEPHRITIS INTERSTITIAL [None]
  - OEDEMA PERIPHERAL [None]
  - RENAL FAILURE ACUTE [None]
  - WEIGHT DECREASED [None]
  - WEIGHT INCREASED [None]
